FAERS Safety Report 23245235 (Version 4)
Quarter: 2024Q3

REPORT INFORMATION
  Report Type: Report from Study
  Country: ES (occurrence: ES)
  Receive Date: 20231130
  Receipt Date: 20240731
  Transmission Date: 20241017
  Serious: Yes (Other)
  Sender: JOHNSON AND JOHNSON
  Company Number: ES-BoehringerIngelheim-2021-BI-112097

PATIENT
  Age: 70 Year
  Sex: Male

DRUGS (4)
  1. LOPERAMIDE HYDROCHLORIDE [Suspect]
     Active Substance: LOPERAMIDE HYDROCHLORIDE
     Indication: Product used for unknown indication
     Route: 065
  2. OFEV [Suspect]
     Active Substance: NINTEDANIB
     Indication: Idiopathic pulmonary fibrosis
     Dosage: 150MG/12H
     Route: 048
     Dates: start: 20170202
  3. TROMALYT [Concomitant]
     Active Substance: ASPIRIN
     Indication: Product used for unknown indication
     Route: 065
  4. SIMVASTATIN [Concomitant]
     Active Substance: SIMVASTATIN
     Indication: Product used for unknown indication
     Route: 065

REACTIONS (15)
  - Arteriosclerosis coronary artery [Not Recovered/Not Resolved]
  - Arthralgia [Not Recovered/Not Resolved]
  - Aerophagia [Not Recovered/Not Resolved]
  - Hypertension [Recovered/Resolved]
  - Cholelithiasis [Not Recovered/Not Resolved]
  - Illness [Unknown]
  - White blood cell count increased [Recovered/Resolved]
  - Vitamin D deficiency [Not Recovered/Not Resolved]
  - Bone density abnormal [Not Recovered/Not Resolved]
  - Back pain [Recovered/Resolved]
  - Nasopharyngitis [Recovered/Resolved]
  - Red blood cell hypochromic morphology present [Not Recovered/Not Resolved]
  - COVID-19 [Recovered/Resolved]
  - Tumour marker increased [Not Recovered/Not Resolved]
  - Fatigue [Recovered/Resolved]

NARRATIVE: CASE EVENT DATE: 20210816
